FAERS Safety Report 13888117 (Version 5)
Quarter: 2017Q4

REPORT INFORMATION
  Report Type: Spontaneous
  Country: GB (occurrence: GB)
  Receive Date: 20170822
  Receipt Date: 20171207
  Transmission Date: 20180320
  Serious: Yes (Hospitalization, Other)
  Sender: FDA-Public Use
  Company Number: GB-MYLANLABS-2017M1051985

PATIENT
  Age: 16 Year
  Sex: Male

DRUGS (2)
  1. CLOZARIL [Suspect]
     Active Substance: CLOZAPINE
     Indication: AFFECTIVE DISORDER
     Dosage: UNK
     Route: 048
     Dates: start: 20170913
  2. CLOZARIL [Suspect]
     Active Substance: CLOZAPINE
     Indication: SCHIZOPHRENIA
     Dosage: UNK
     Route: 048
     Dates: start: 20161205, end: 20170814

REACTIONS (8)
  - Neutropenia [Recovered/Resolved]
  - Product use issue [Unknown]
  - Schizophrenia [Unknown]
  - Platelet count decreased [Recovered/Resolved]
  - Wrong technique in product usage process [Unknown]
  - Hospitalisation [Unknown]
  - Product use in unapproved indication [Unknown]
  - White blood cell count decreased [Recovered/Resolved]

NARRATIVE: CASE EVENT DATE: 20161205
